FAERS Safety Report 9371401 (Version 1)
Quarter: 2013Q2

REPORT INFORMATION
  Report Type: Spontaneous
  Country: US (occurrence: None)
  Receive Date: 20130626
  Receipt Date: 20130626
  Transmission Date: 20140414
  Serious: No
  Sender: FDA-Public Use
  Company Number: None

PATIENT
  Age: 36 Year
  Sex: Female
  Weight: 60.5 kg

DRUGS (1)
  1. MIRENA [Suspect]

REACTIONS (4)
  - Burning sensation [None]
  - Eyelid oedema [None]
  - Erythema of eyelid [None]
  - Eyelids pruritus [None]
